FAERS Safety Report 17839137 (Version 3)
Quarter: 2025Q2

REPORT INFORMATION
  Report Type: Spontaneous
  Country: JP (occurrence: JP)
  Receive Date: 20200529
  Receipt Date: 20250410
  Transmission Date: 20250716
  Serious: Yes (Death, Other)
  Sender: AUROBINDO
  Company Number: JP-AUROBINDO-AUR-APL-2020-026366

PATIENT
  Age: 68 Year
  Sex: Male

DRUGS (8)
  1. FOLOTYN [Suspect]
     Active Substance: PRALATREXATE
     Indication: Cutaneous T-cell lymphoma stage II
     Route: 042
     Dates: start: 20190718, end: 20190718
  2. FOLOTYN [Suspect]
     Active Substance: PRALATREXATE
     Route: 042
     Dates: start: 20190725, end: 20190725
  3. FOLOTYN [Suspect]
     Active Substance: PRALATREXATE
     Route: 042
     Dates: start: 20190801, end: 20190801
  4. CYCLOPHOSPHAMIDE\DOXORUBICIN\PREDNISONE\VINCRISTINE [Suspect]
     Active Substance: CYCLOPHOSPHAMIDE\DOXORUBICIN\PREDNISONE\VINCRISTINE
     Indication: Cutaneous T-cell lymphoma stage II
     Route: 065
     Dates: start: 20190821
  5. CYCLOPHOSPHAMIDE\DOXORUBICIN\PREDNISONE\VINCRISTINE [Suspect]
     Active Substance: CYCLOPHOSPHAMIDE\DOXORUBICIN\PREDNISONE\VINCRISTINE
     Route: 065
     Dates: start: 20190918
  6. CISPLATIN\CYTARABINE\ETOPOSIDE\METHYLPREDNISOLONE (ESHAP) [Suspect]
     Active Substance: CISPLATIN\CYTARABINE\ETOPOSIDE\METHYLPREDNISOLONE (ESHAP)
     Indication: Cutaneous T-cell lymphoma stage II
     Route: 065
     Dates: start: 20191011
  7. CARBOPLATIN\ETOPOSIDE\IFOSFAMIDE [Suspect]
     Active Substance: CARBOPLATIN\ETOPOSIDE\IFOSFAMIDE
     Indication: Cutaneous T-cell lymphoma stage II
     Route: 065
     Dates: start: 20191106
  8. LEUCOVORIN [Concomitant]
     Active Substance: LEUCOVORIN\LEUCOVORIN CALCIUM
     Indication: Product used for unknown indication
     Route: 065

REACTIONS (8)
  - Respiratory failure [Fatal]
  - Malignant neoplasm progression [Unknown]
  - Altered state of consciousness [Unknown]
  - Tumour invasion [Unknown]
  - Platelet count decreased [Recovering/Resolving]
  - Lymphadenopathy [Unknown]
  - Stomatitis [Not Recovered/Not Resolved]
  - Neutrophil count decreased [Recovering/Resolving]

NARRATIVE: CASE EVENT DATE: 20200720
